FAERS Safety Report 9195334 (Version 1)
Quarter: 2013Q1

REPORT INFORMATION
  Report Type: Spontaneous
  Country: None (occurrence: US)
  Receive Date: 20130328
  Receipt Date: 20130328
  Transmission Date: 20140127
  Serious: No
  Sender: FDA-Public Use
  Company Number: US-ALLERGAN-1208303US

PATIENT
  Age: 90 Year
  Sex: Female
  Weight: 38.55 kg

DRUGS (2)
  1. LUMIGAN [Suspect]
     Indication: GLAUCOMA
     Dosage: UNK
     Route: 065
     Dates: start: 201111
  2. COMBIGAN[R] [Suspect]
     Indication: GLAUCOMA
     Dosage: UNK
     Route: 065
     Dates: start: 201111

REACTIONS (1)
  - Somnolence [Unknown]
